FAERS Safety Report 7383638-1 (Version None)
Quarter: 2011Q1

REPORT INFORMATION
  Report Type: 
  Country: None (occurrence: None)
  Receive Date: 20110325
  Receipt Date: 20110325
  Transmission Date: 20110831
  Serious: Yes (Hospitalization)
  Sender: FDA-Public Use
  Company Number: None

PATIENT
  Age: 47 Year
  Sex: Male
  Weight: 107.9561 kg

DRUGS (2)
  1. LISINOPRIL AND HYDROCHLOROTHIAZIDE [Concomitant]
  2. ANACIN MAXIMUM STRENGTH 75 [Suspect]
     Indication: PAIN IN EXTREMITY
     Dosage: 2 TABLETS 1-2 TIMES DAILY
     Dates: start: 20110211, end: 20110216

REACTIONS (4)
  - WEIGHT DECREASED [None]
  - LARGE INTESTINAL HAEMORRHAGE [None]
  - ABDOMINAL DISCOMFORT [None]
  - SYNCOPE [None]
